FAERS Safety Report 21824817 (Version 2)
Quarter: 2023Q1

REPORT INFORMATION
  Report Type: Spontaneous
  Country: US (occurrence: US)
  Receive Date: 20230105
  Receipt Date: 20230210
  Transmission Date: 20230418
  Serious: No
  Sender: FDA-Public Use
  Company Number: US-ABBVIE-4235574

PATIENT
  Age: 60 Year
  Sex: Female
  Weight: 79 kg

DRUGS (4)
  1. HUMIRA [Suspect]
     Active Substance: ADALIMUMAB
     Indication: Colitis ulcerative
     Dosage: START DATE OF THERAPY WAS ON --2022.
     Route: 058
     Dates: start: 202208
  2. HUMIRA [Suspect]
     Active Substance: ADALIMUMAB
     Route: 058
     Dates: start: 202204, end: 202208
  3. ESCITALOPRAM [Concomitant]
     Active Substance: ESCITALOPRAM OXALATE
     Indication: Anxiety
  4. RINVOQ [Concomitant]
     Active Substance: UPADACITINIB
     Indication: Colitis ulcerative
     Dates: start: 202211, end: 202211

REACTIONS (5)
  - Inflammatory marker increased [Unknown]
  - Frequent bowel movements [Recovering/Resolving]
  - Unevaluable event [Unknown]
  - Drug ineffective [Unknown]
  - Haematochezia [Recovered/Resolved]

NARRATIVE: CASE EVENT DATE: 20221001
